FAERS Safety Report 4524823-3 (Version None)
Quarter: 2004Q4

REPORT INFORMATION
  Report Type: 
  Country: None (occurrence: None)
  Receive Date: 20041209
  Receipt Date: 20041209
  Transmission Date: 20050328
  Serious: Yes (Other)
  Sender: FDA-Public Use
  Company Number: None

PATIENT
  Age: 20 Year
  Sex: Male

DRUGS (2)
  1. DEXTROAMPHETAMINE 10MG  MALLINKROFT [Suspect]
     Indication: DRUG USE FOR UNKNOWN INDICATION
     Dosage: 10MG  BID ORAL
     Route: 048
     Dates: start: 20040524, end: 20040701
  2. ALBUTEROL [Concomitant]

REACTIONS (2)
  - PHARMACEUTICAL PRODUCT COMPLAINT [None]
  - RASH [None]
